FAERS Safety Report 8791850 (Version 8)
Quarter: 2016Q3

REPORT INFORMATION
  Report Type: Spontaneous
  Country: US (occurrence: US)
  Receive Date: 20120918
  Receipt Date: 20160921
  Transmission Date: 20161109
  Serious: Yes (Hospitalization, Other)
  Sender: FDA-Public Use
  Company Number: US-MERCK-1209USA002303

PATIENT
  Sex: Female
  Weight: 58.5 kg

DRUGS (6)
  1. FOSAMAX [Suspect]
     Active Substance: ALENDRONATE SODIUM
     Indication: OSTEOPOROSIS
     Dosage: 10 MG, QD
     Route: 048
     Dates: start: 19970101, end: 20030219
  2. FOSAMAX [Suspect]
     Active Substance: ALENDRONATE SODIUM
     Dosage: 70 MG, QW
     Route: 048
     Dates: end: 20030219
  3. ALENDRONATE SODIUM. [Suspect]
     Active Substance: ALENDRONATE SODIUM
     Indication: OSTEOPOROSIS
     Dosage: 70 MG, UNK
     Route: 048
     Dates: start: 200811, end: 201011
  4. CHOLECALCIFEROL [Concomitant]
     Active Substance: CHOLECALCIFEROL
     Indication: OSTEOPOROSIS
     Dosage: 1000 IU, QD
     Route: 048
     Dates: start: 1985
  5. FOSAMAX PLUS D [Suspect]
     Active Substance: ALENDRONATE SODIUM\CHOLECALCIFEROL
     Indication: OSTEOPOROSIS
     Dosage: 70 MG/2800 IU
     Route: 048
     Dates: end: 200811
  6. CALCIUM (UNSPECIFIED) [Concomitant]
     Active Substance: CALCIUM
     Indication: OSTEOPOROSIS
     Dosage: UNK
     Route: 048
     Dates: start: 1985

REACTIONS (23)
  - Cyst aspiration [Unknown]
  - Tooth fracture [Unknown]
  - Rotator cuff syndrome [Unknown]
  - Sciatica [Unknown]
  - Muscular weakness [Unknown]
  - Hyperlipidaemia [Unknown]
  - Pain in extremity [Unknown]
  - Endodontic procedure [Unknown]
  - Hospitalisation [Unknown]
  - Musculoskeletal stiffness [Unknown]
  - Arthralgia [Unknown]
  - Hospitalisation [Unknown]
  - Essential hypertension [Unknown]
  - Large intestine polyp [Unknown]
  - Bursitis [Unknown]
  - Sciatica [Unknown]
  - Stress [Unknown]
  - Bone pain [Unknown]
  - Type 2 diabetes mellitus [Unknown]
  - Femur fracture [Recovering/Resolving]
  - Hospitalisation [Unknown]
  - Bursitis [Unknown]
  - Tendonitis [Unknown]

NARRATIVE: CASE EVENT DATE: 1998
